FAERS Safety Report 23799302 (Version 1)
Quarter: 2024Q2

REPORT INFORMATION
  Report Type: Spontaneous
  Country: US (occurrence: None)
  Receive Date: 20240428
  Receipt Date: 20240428
  Transmission Date: 20240716
  Serious: No
  Sender: FDA-Public Use
  Company Number: None

PATIENT
  Age: 60 Year
  Sex: Male
  Weight: 130 kg

DRUGS (1)
  1. EMPAGLIFLOZIN [Suspect]
     Active Substance: EMPAGLIFLOZIN
     Indication: Diabetes mellitus
     Dates: start: 20200106

REACTIONS (7)
  - Cellulitis [None]
  - Hyperkalaemia [None]
  - Hyperglycaemia [None]
  - Metabolic acidosis [None]
  - Diabetic ketoacidosis [None]
  - Procedural complication [None]
  - Treatment noncompliance [None]

NARRATIVE: CASE EVENT DATE: 20230503
